FAERS Safety Report 24572527 (Version 1)
Quarter: 2024Q4

REPORT INFORMATION
  Report Type: Spontaneous
  Country: US (occurrence: US)
  Receive Date: 20241101
  Receipt Date: 20241101
  Transmission Date: 20250115
  Serious: Yes (Other)
  Sender: TORRENT PHARMA INC.
  Company Number: US-TORRENT-00013817

PATIENT
  Age: 46 Year
  Sex: Male

DRUGS (1)
  1. DICHLORPHENAMIDE [Suspect]
     Active Substance: DICHLORPHENAMIDE
     Indication: Paralysis
     Dosage: UNKNOWN
     Route: 065

REACTIONS (1)
  - Arrhythmia [Unknown]
